FAERS Safety Report 17554334 (Version 2)
Quarter: 2020Q1

REPORT INFORMATION
  Report Type: Spontaneous
  Country: JP (occurrence: JP)
  Receive Date: 20200318
  Receipt Date: 20200330
  Transmission Date: 20200409
  Serious: Yes (Hospitalization, Other)
  Sender: FDA-Public Use
  Company Number: JP-GLAXOSMITHKLINE-JP2020JPN045312

PATIENT
  Age: 13 Year
  Sex: Male
  Weight: 18 kg

DRUGS (8)
  1. WHITE PETROLATUM [Concomitant]
     Active Substance: PETROLATUM
     Dosage: UNK
  2. MAGNESIUM OXIDE BULK POWDER [Concomitant]
     Dosage: UNK
  3. LAMICTAL [Suspect]
     Active Substance: LAMOTRIGINE
     Indication: EPILEPSY
     Dosage: 2 MG, QD
     Route: 048
     Dates: start: 20190509, end: 20190522
  4. LAMICTAL [Suspect]
     Active Substance: LAMOTRIGINE
     Dosage: 2 MG, BID
     Route: 048
     Dates: start: 20190523, end: 20190607
  5. LOCOID CREAM [Concomitant]
     Dosage: UNK
  6. EXCEGRAN POWDER [Concomitant]
     Dosage: UNK
  7. FERROMIA (JAPAN) [Concomitant]
     Dosage: UNK
  8. SELENICA-R GRANULES [Concomitant]
     Dosage: UNK

REACTIONS (9)
  - Fluid intake reduced [Unknown]
  - Enanthema [Recovering/Resolving]
  - Rash [Recovering/Resolving]
  - Stevens-Johnson syndrome [Recovering/Resolving]
  - Prescribed underdose [Unknown]
  - Product use issue [Unknown]
  - Lip erosion [Recovering/Resolving]
  - Off label use [Unknown]
  - Pyrexia [Recovering/Resolving]

NARRATIVE: CASE EVENT DATE: 20190523
